FAERS Safety Report 8488604-0 (Version None)
Quarter: 2012Q2

REPORT INFORMATION
  Report Type: 
  Country: None (occurrence: None)
  Receive Date: 20120626
  Receipt Date: 20120611
  Transmission Date: 20120825
  Serious: Yes (Hospitalization, Disabling)
  Sender: FDA-Public Use
  Company Number: 2012MA007195

PATIENT
  Age: 24 Year
  Sex: Female

DRUGS (2)
  1. FEVERALL [Suspect]
     Indication: PAIN
     Dosage: 1 GM; PRN; PO
     Route: 048
  2. FENTANYL-100 [Suspect]
     Indication: PAIN
     Dosage: 25 UG; TRDM
     Route: 062

REACTIONS (2)
  - MATERNAL EXPOSURE DURING PREGNANCY [None]
  - NO THERAPEUTIC RESPONSE [None]
